FAERS Safety Report 5106794-4 (Version None)
Quarter: 2006Q3

REPORT INFORMATION
  Report Type: 
  Country: None (occurrence: None)
  Receive Date: 20060918
  Receipt Date: 20050802
  Transmission Date: 20061208
  Serious: Yes (Hospitalization, Other)
  Sender: FDA-Public Use
  Company Number: DE-PURDUE-DEU_2005_0001608

PATIENT
  Age: 60 Year
  Sex: Female
  Weight: 105 kg

DRUGS (10)
  1. OXY/NALOXONE VS OXY/PLACEBO CR TAB [Suspect]
     Indication: BACK PAIN
     Dosage: 20 MG, DAILY
     Route: 048
     Dates: start: 20050503, end: 20051013
  2. OXYGESIC KAPSELN 5MG [Suspect]
     Indication: BACK PAIN
     Dosage: 5 MG, PRN
     Route: 048
     Dates: start: 20050413
  3. ASPIRIN [Concomitant]
  4. BELOC ZOK [Concomitant]
  5. RAMIPRIL [Concomitant]
  6. INSULIN [Concomitant]
  7. TRAMADOL HCL [Concomitant]
     Dosage: UNK, UNK
     Dates: end: 20050417
  8. OMEPRAZOLE [Concomitant]
  9. KEIMAX [Concomitant]
  10. ISCOVER [Concomitant]

REACTIONS (5)
  - ANGINA UNSTABLE [None]
  - BLOOD PRESSURE DECREASED [None]
  - CORONARY ARTERY DISEASE [None]
  - CORONARY ARTERY STENOSIS [None]
  - TREATMENT NONCOMPLIANCE [None]
